FAERS Safety Report 6904303-8 (Version None)
Quarter: 2010Q3

REPORT INFORMATION
  Report Type: 
  Country: None (occurrence: None)
  Receive Date: 20100804
  Receipt Date: 20090421
  Transmission Date: 20110219
  Serious: Yes (Other)
  Sender: FDA-Public Use
  Company Number: US-PFIZER INC-2008082816

PATIENT
  Sex: Female
  Weight: 86.2 kg

DRUGS (1)
  1. LYRICA [Suspect]
     Route: 048
     Dates: start: 20070101, end: 20080301

REACTIONS (3)
  - IMPAIRED DRIVING ABILITY [None]
  - VISUAL IMPAIRMENT [None]
  - WEIGHT INCREASED [None]
